FAERS Safety Report 18019921 (Version 4)
Quarter: 2020Q3

REPORT INFORMATION
  Report Type: Spontaneous
  Country: US (occurrence: US)
  Receive Date: 20200714
  Receipt Date: 20200923
  Transmission Date: 20201103
  Serious: No
  Sender: FDA-Public Use
  Company Number: US-PFIZER INC-2020268159

PATIENT
  Age: 58 Year
  Sex: Female
  Weight: 68.04 kg

DRUGS (4)
  1. IBRANCE [Suspect]
     Active Substance: PALBOCICLIB
     Dosage: 1 DF, CYCLIC (ONE TABLET DAILY WITH FOOD 21 DAYS 7 DAYS OFF REPEAT AS DIRECTED)
     Route: 048
     Dates: start: 202005
  2. IBRANCE [Suspect]
     Active Substance: PALBOCICLIB
     Indication: BREAST CANCER FEMALE
     Dosage: 125 MG, DAILY
     Route: 048
     Dates: start: 202003, end: 202003
  3. CALCIUM CARBONATE. [Concomitant]
     Active Substance: CALCIUM CARBONATE
     Indication: BONE DISORDER
     Dosage: 1 DF, DAILY (600/400 1 TABLET BY MOUTH DAILY)
     Route: 048
     Dates: start: 20200512
  4. LETROZOLE. [Concomitant]
     Active Substance: LETROZOLE
     Indication: HORMONE THERAPY
     Dosage: 2.5 MG, DAILY
     Route: 048
     Dates: start: 20200512

REACTIONS (9)
  - Stomatitis [Not Recovered/Not Resolved]
  - Oral mucosal blistering [Not Recovered/Not Resolved]
  - Oral pain [Unknown]
  - Fear [Unknown]
  - Pain [Unknown]
  - Mouth haemorrhage [Unknown]
  - Mouth ulceration [Not Recovered/Not Resolved]
  - Abdominal pain [Not Recovered/Not Resolved]
  - Hot flush [Not Recovered/Not Resolved]

NARRATIVE: CASE EVENT DATE: 2020
